FAERS Safety Report 11300233 (Version 1)
Quarter: 2015Q3

REPORT INFORMATION
  Report Type: Spontaneous
  Country: US (occurrence: US)
  Receive Date: 20150722
  Receipt Date: 20150722
  Transmission Date: 20151125
  Serious: No
  Sender: FDA-Public Use
  Company Number: US-ELI_LILLY_AND_COMPANY-US201303006405

PATIENT
  Sex: Male

DRUGS (3)
  1. HUMATROPE [Suspect]
     Active Substance: SOMATROPIN
     Indication: GROWTH HORMONE DEFICIENCY
     Dosage: 0.35 MG, QD
  2. TESTOSTERONE. [Concomitant]
     Active Substance: TESTOSTERONE
  3. TADALAFIL [Concomitant]
     Active Substance: TADALAFIL

REACTIONS (2)
  - Drug dose omission [Unknown]
  - Enzyme activity abnormal [Unknown]
